FAERS Safety Report 10204287 (Version 1)
Quarter: 2014Q2

REPORT INFORMATION
  Report Type: Spontaneous
  Country: US (occurrence: None)
  Receive Date: 20140527
  Receipt Date: 20140527
  Transmission Date: 20141212
  Serious: Yes (Hospitalization)
  Sender: FDA-Public Use
  Company Number: None

PATIENT
  Sex: Male

DRUGS (6)
  1. LISINOPRIL [Suspect]
     Indication: HYPERTENSION
     Route: 048
     Dates: start: 20120310, end: 20120310
  2. AMLODIPINE [Concomitant]
  3. FOLIC ACID [Concomitant]
  4. DOCUSATE [Concomitant]
  5. SENNA [Concomitant]
  6. DICLOFENAC [Concomitant]

REACTIONS (1)
  - Angioedema [None]
